FAERS Safety Report 25003851 (Version 3)
Quarter: 2025Q1

REPORT INFORMATION
  Report Type: Spontaneous
  Country: US (occurrence: US)
  Receive Date: 20250224
  Receipt Date: 20250327
  Transmission Date: 20250408
  Serious: No
  Sender: PFIZER
  Company Number: US-PFIZER INC-202500039745

PATIENT
  Age: 18 Year
  Sex: Male

DRUGS (1)
  1. GENOTROPIN [Suspect]
     Active Substance: SOMATROPIN
     Dates: end: 202412

REACTIONS (3)
  - Device mechanical issue [Unknown]
  - Device issue [Unknown]
  - Off label use [Unknown]
